FAERS Safety Report 6172948-1 (Version None)
Quarter: 2009Q2

REPORT INFORMATION
  Report Type: 
  Country: None (occurrence: None)
  Receive Date: 20090430
  Receipt Date: 20090424
  Transmission Date: 20091009
  Serious: Yes (Hospitalization)
  Sender: FDA-Public Use
  Company Number: US-ASTRAZENECA-2009UW10253

PATIENT
  Age: 25 Year
  Sex: Female

DRUGS (3)
  1. ENTOCORT EC [Suspect]
     Dosage: 3 MG, 3 IN ONE DAY, 4 DOSES TOTAL
     Route: 048
     Dates: start: 20081217
  2. HUMIRA [Suspect]
     Indication: CROHN'S DISEASE
     Dosage: 40 MG/0.8 ML PRE-FILLED ONE IN 2 WEEKS
     Dates: start: 20080601
  3. PREDNISONE [Concomitant]

REACTIONS (1)
  - STEVENS-JOHNSON SYNDROME [None]
